FAERS Safety Report 10380760 (Version 1)
Quarter: 2014Q3

REPORT INFORMATION
  Report Type: Spontaneous
  Country: CN (occurrence: None)
  Receive Date: 20140808
  Receipt Date: 20140808
  Transmission Date: 20150326
  Serious: Yes (Other)
  Sender: FDA-Public Use
  Company Number: 2014CVI00021

PATIENT
  Age: 45 Year
  Sex: Male

DRUGS (4)
  1. CEFTAZIDIME. [Suspect]
     Active Substance: CEFTAZIDIME
     Route: 042
  2. CEPHAZOLIN SODIUM [Concomitant]
     Active Substance: CEFAZOLIN SODIUM
  3. HEPARIN [Concomitant]
     Active Substance: HEPARIN SODIUM
  4. LIGOCAINE HYDROCHLORIDE [Concomitant]

REACTIONS (9)
  - Nervous system disorder [None]
  - Muscular weakness [None]
  - Delirium [None]
  - Electroencephalogram abnormal [None]
  - Disorientation [None]
  - Restlessness [None]
  - Abnormal behaviour [None]
  - Logorrhoea [None]
  - Incoherent [None]
